FAERS Safety Report 7900364-8 (Version None)
Quarter: 2011Q4

REPORT INFORMATION
  Report Type: 
  Country: None (occurrence: None)
  Receive Date: 20111108
  Receipt Date: 20111101
  Transmission Date: 20120403
  Serious: No
  Sender: FDA-Public Use
  Company Number: US-PFIZER INC-2011268050

PATIENT
  Age: 92 Year
  Sex: Female

DRUGS (2)
  1. XALATAN [Suspect]
     Indication: EYE DISORDER
     Dosage: ONE DROP IN BOTH EYES DAILY AT NIGHT
     Route: 047
  2. XALATAN [Suspect]
     Indication: VISUAL IMPAIRMENT

REACTIONS (2)
  - DRUG INEFFECTIVE [None]
  - FEELING ABNORMAL [None]
